FAERS Safety Report 6627994 (Version 2)
Quarter: 2015Q4

REPORT INFORMATION
  Report Type: Spontaneous
  Country: AU (occurrence: AU)
  Receive Date: 20080429
  Receipt Date: 20151015
  Transmission Date: 20160305
  Serious: Yes (Other)
  Sender: FDA-Public Use
  Company Number: AU-PFIZER INC-2008025816

PATIENT
  Age: 59 Year
  Sex: Female

DRUGS (5)
  1. CHAMPIX [Suspect]
     Active Substance: VARENICLINE TARTRATE
     Dosage: 0.5 MG, 1X/DAY
     Route: 048
     Dates: start: 20080313, end: 20080315
  2. OSTELIN [Suspect]
     Active Substance: ERGOCALCIFEROL
     Dosage: 1000 (NO UNIT PROVIDED) ONE IN THE MORNING
     Route: 048
  3. MOVALIS [Concomitant]
     Active Substance: MELOXICAM
     Dosage: 15 MG, 1X/DAY
     Route: 048
  4. AVAPRO HCT [Concomitant]
     Active Substance: HYDROCHLOROTHIAZIDE\IRBESARTAN
     Dosage: [IRBESARTAN 150 MG]/[HYDROCHLOROTHIAZIDE 12.5 MG], 1 DF, 1X/DAY
     Route: 048
  5. VITAMIN D [Concomitant]
     Active Substance: CHOLECALCIFEROL
     Dosage: UNK

REACTIONS (2)
  - Petechiae [Not Recovered/Not Resolved]
  - Eczema [Not Recovered/Not Resolved]

NARRATIVE: CASE EVENT DATE: 20080315
